FAERS Safety Report 9647680 (Version 1)
Quarter: 2013Q4

REPORT INFORMATION
  Report Type: Spontaneous
  Country: US (occurrence: None)
  Receive Date: 20131024
  Receipt Date: 20131024
  Transmission Date: 20140711
  Serious: Yes (Other)
  Sender: FDA-Public Use
  Company Number: None

PATIENT
  Age: 55 Year
  Sex: Male
  Weight: 90.72 kg

DRUGS (9)
  1. EDURANT 25MG [Suspect]
     Dosage: 1 PILL
     Route: 048
  2. CPAP [Concomitant]
  3. TIVICAY [Suspect]
     Dosage: 1 TABLET
     Dates: start: 20131021
  4. TRUVADA [Suspect]
     Dosage: 1 TABLET
     Dates: start: 20040227
  5. ACYCLOVIR [Suspect]
     Dosage: 1 TABLET
  6. CRESTOR [Suspect]
     Dosage: 1 TABLET IN EVENING
  7. METOPROLOL [Suspect]
     Dosage: 1 TABLET
  8. ASPIRIN [Suspect]
     Dosage: 1 TABLET EACH MORNING
  9. NIACIN [Suspect]
     Dosage: 4 TABLETS

REACTIONS (2)
  - Medication error [None]
  - Circumstance or information capable of leading to medication error [None]
